FAERS Safety Report 17147020 (Version 1)
Quarter: 2019Q4

REPORT INFORMATION
  Report Type: Spontaneous
  Country: FR (occurrence: FR)
  Receive Date: 20191212
  Receipt Date: 20191212
  Transmission Date: 20200122
  Serious: Yes (Hospitalization)
  Sender: FDA-Public Use
  Company Number: FR-ZYDUS-021761

PATIENT
  Age: 45 Year
  Sex: Female
  Weight: 67 kg

DRUGS (1)
  1. TAMOXIFEN [Suspect]
     Active Substance: TAMOXIFEN
     Indication: BREAST CANCER
     Route: 048
     Dates: start: 20150101, end: 20171214

REACTIONS (2)
  - Pulmonary embolism [Recovered/Resolved]
  - Arterial thrombosis [Not Recovered/Not Resolved]

NARRATIVE: CASE EVENT DATE: 20171212
